FAERS Safety Report 23995709 (Version 1)
Quarter: 2024Q2

REPORT INFORMATION
  Report Type: Report from Study
  Country: BE (occurrence: BE)
  Receive Date: 20240620
  Receipt Date: 20240620
  Transmission Date: 20240716
  Serious: Yes (Hospitalization)
  Sender: FDA-Public Use
  Company Number: BE-BPPPROD-2023000689

PATIENT
  Age: 59 Year
  Sex: Male
  Weight: 114 kg

DRUGS (8)
  1. GABAPENTIN [Suspect]
     Active Substance: GABAPENTIN
     Indication: Product used for unknown indication
     Dosage: 600 MILLIGRAM, QD
     Route: 048
  2. GABAPENTIN [Suspect]
     Active Substance: GABAPENTIN
     Indication: Product used for unknown indication
     Dosage: 100 MILLIGRAM, QD
     Route: 048
  3. PITOLISANT HYDROCHLORIDE [Suspect]
     Active Substance: PITOLISANT HYDROCHLORIDE
     Indication: Obstructive sleep apnoea syndrome
     Dosage: 4.5 MILLIGRAM, QD
     Route: 048
     Dates: start: 20230908, end: 20230915
  4. PITOLISANT HYDROCHLORIDE [Suspect]
     Active Substance: PITOLISANT HYDROCHLORIDE
     Dosage: 9 MILLIGRAM, QD
     Route: 048
     Dates: start: 20230916, end: 20230922
  5. PITOLISANT HYDROCHLORIDE [Suspect]
     Active Substance: PITOLISANT HYDROCHLORIDE
     Dosage: 18 MILLIGRAM, QD
     Route: 048
     Dates: start: 20230923, end: 20240603
  6. PAROXETINE HYDROCHLORIDE [Suspect]
     Active Substance: PAROXETINE HYDROCHLORIDE\PAROXETINE HYDROCHLORIDE ANHYDROUS
     Indication: Product used for unknown indication
     Dosage: 20 MILLIGRAM, QD
     Route: 048
  7. MIRTAZAPINE [Concomitant]
     Active Substance: MIRTAZAPINE
     Dosage: 15 MILLIGRAM, QD
     Route: 048
  8. Pantomed [Concomitant]
     Dosage: 20 MILLIGRAM, QD
     Route: 048

REACTIONS (6)
  - Epilepsy [Recovered/Resolved]
  - Headache [Not Recovered/Not Resolved]
  - Fatigue [Not Recovered/Not Resolved]
  - Weight increased [Not Recovered/Not Resolved]
  - Dizziness [Not Recovered/Not Resolved]
  - Therapy cessation [Unknown]

NARRATIVE: CASE EVENT DATE: 20230908
